FAERS Safety Report 12708621 (Version 2)
Quarter: 2016Q3

REPORT INFORMATION
  Report Type: Other
  Country: IT (occurrence: IT)
  Receive Date: 20160901
  Receipt Date: 20160912
  Transmission Date: 20161109
  Serious: Yes (Hospitalization, Other)
  Sender: FDA-Public Use
  Company Number: IT-ALEXION PHARMACEUTICALS INC.-A201606377

PATIENT
  Age: 63 Year
  Sex: Male

DRUGS (5)
  1. FIDATO [Concomitant]
     Active Substance: CEFTRIAXONE SODIUM
     Indication: INFECTION PROPHYLAXIS
     Dosage: 1 G, DIE, POWDER AND SOLUTION FOR INTRAVENOUS INFUSION
     Route: 042
     Dates: start: 20160804, end: 20160819
  2. SOLIRIS [Suspect]
     Active Substance: ECULIZUMAB
     Indication: HAEMOLYTIC URAEMIC SYNDROME
     Dosage: 900 MG, SINGLE
     Route: 042
     Dates: start: 20160805, end: 20160805
  3. SOLU-MEDROL [Concomitant]
     Active Substance: METHYLPREDNISOLONE SODIUM SUCCINATE
     Indication: HAEMOLYTIC URAEMIC SYNDROME
     Dosage: 80 MG, UNK, POWDER AND SOLUTION FOR INTRAVENOUS INFUSION
     Route: 042
     Dates: start: 20160727, end: 20160805
  4. ROCEFIN [Concomitant]
     Active Substance: CEFTRIAXONE SODIUM
     Indication: PROPHYLAXIS
     Route: 065
  5. SOLIRIS [Suspect]
     Active Substance: ECULIZUMAB
     Dosage: UNK
     Route: 042
     Dates: start: 201608

REACTIONS (2)
  - Otitis media acute [Recovered/Resolved]
  - Pyrexia [Recovered/Resolved]

NARRATIVE: CASE EVENT DATE: 20160810
